FAERS Safety Report 6129323-5 (Version None)
Quarter: 2009Q1

REPORT INFORMATION
  Report Type: 
  Country: None (occurrence: None)
  Receive Date: 20090324
  Receipt Date: 20090313
  Transmission Date: 20090719
  Serious: Yes (Other)
  Sender: FDA-Public Use
  Company Number: US-BIOGENIDEC-2009BI008101

PATIENT
  Age: 36 Year
  Sex: Female

DRUGS (2)
  1. TYSABRI [Suspect]
     Indication: MULTIPLE SCLEROSIS
     Route: 042
     Dates: start: 20061103, end: 20080718
  2. TYSABRI [Suspect]
     Route: 042
     Dates: start: 20081209

REACTIONS (2)
  - ABORTION SPONTANEOUS [None]
  - PREGNANCY [None]
